FAERS Safety Report 4945873-9 (Version None)
Quarter: 2006Q1

REPORT INFORMATION
  Report Type: 
  Country: None (occurrence: None)
  Receive Date: 20060117
  Receipt Date: 20041216
  Transmission Date: 20060701
  Serious: Yes (Other)
  Sender: FDA-Public Use
  Company Number: A03200404258

PATIENT
  Age: 74 Year
  Sex: Female

DRUGS (1)
  1. PLAVIX [Suspect]
     Dosage: ORAL
     Route: 048

REACTIONS (1)
  - HAEMORRHAGIC STROKE [None]
